FAERS Safety Report 9289319 (Version 1)
Quarter: 2013Q2

REPORT INFORMATION
  Report Type: Spontaneous
  Country: US (occurrence: US)
  Receive Date: 20130514
  Receipt Date: 20130514
  Transmission Date: 20140414
  Serious: Yes (Hospitalization)
  Sender: FDA-Public Use
  Company Number: CHPA2013US008185

PATIENT
  Age: 92 Year
  Sex: Female

DRUGS (1)
  1. PREVACID 24HR 15MG [Suspect]
     Indication: HIATUS HERNIA
     Dosage: 15 MG, QD
     Route: 048

REACTIONS (8)
  - Blood pressure increased [Recovering/Resolving]
  - Hiatus hernia [Recovering/Resolving]
  - Condition aggravated [Recovering/Resolving]
  - Chest pain [Recovering/Resolving]
  - Dry skin [Not Recovered/Not Resolved]
  - Off label use [Unknown]
  - Therapeutic response unexpected [Unknown]
  - Incorrect drug administration duration [Unknown]
